FAERS Safety Report 21499189 (Version 1)
Quarter: 2022Q4

REPORT INFORMATION
  Report Type: Report from Study
  Country: EG (occurrence: EG)
  Receive Date: 20221024
  Receipt Date: 20221024
  Transmission Date: 20230113
  Serious: Yes (Hospitalization)
  Sender: FDA-Public Use
  Company Number: EG-SERVIER-S22010666

PATIENT
  Age: 65 Year
  Sex: Male
  Weight: 69 kg

DRUGS (1)
  1. LONSURF [Suspect]
     Active Substance: TIPIRACIL HYDROCHLORIDE\TRIFLURIDINE
     Indication: Colorectal cancer metastatic
     Dosage: 60 MG, QD
     Route: 048
     Dates: start: 20220718, end: 20220722

REACTIONS (3)
  - Decreased appetite [Not Recovered/Not Resolved]
  - Ascites [Not Recovered/Not Resolved]
  - Dehydration [Not Recovered/Not Resolved]

NARRATIVE: CASE EVENT DATE: 20220701
